FAERS Safety Report 7915823-1 (Version None)
Quarter: 2011Q4

REPORT INFORMATION
  Report Type: 
  Country: None (occurrence: None)
  Receive Date: 20111115
  Receipt Date: 20111109
  Transmission Date: 20120403
  Serious: Yes (Death, Hospitalization, Other)
  Sender: FDA-Public Use
  Company Number: PHHY2011DK099208

PATIENT
  Sex: Female

DRUGS (10)
  1. ACETYLSALICYLIC ACID SRT [Suspect]
     Dosage: 750 MG, ONCE/SINGLE
     Route: 048
     Dates: start: 20060512, end: 20060513
  2. ACETYLSALICYLIC ACID SRT [Suspect]
     Dosage: 75 MG, UNK
     Route: 048
     Dates: start: 20060522
  3. ASPIRIN AND DIPYRIDAMOLE [Suspect]
     Dosage: 200 MG, QD
     Route: 048
  4. AMOXICILLIN [Concomitant]
     Indication: DUODENAL ULCER
     Dosage: 750 MG, UNK
     Dates: start: 20060712
  5. HYDROXYUREA [Suspect]
     Dosage: 500 MG, QD
     Route: 048
     Dates: start: 20030611
  6. ACETYLSALICYLIC ACID SRT [Suspect]
     Dosage: 150 MG, QD
     Route: 048
     Dates: start: 20020101, end: 20060521
  7. FOLIC ACID [Concomitant]
     Indication: BLOOD HOMOCYSTEINE INCREASED
     Dosage: 5 MG, QD
     Route: 048
     Dates: start: 20041126
  8. DIGOXIN [Concomitant]
     Indication: ATRIAL FLUTTER
     Dosage: 187.5 UL, UNK
     Route: 048
     Dates: start: 20060518
  9. ACETAMINOPHEN [Concomitant]
     Indication: PAIN
     Dosage: 1000 MG, QID
     Route: 048
     Dates: start: 20060606
  10. ALLOPURINOL [Concomitant]
     Indication: PROPHYLAXIS
     Dosage: 300 MG, QD
     Route: 048
     Dates: start: 20030611

REACTIONS (4)
  - PLATELET COUNT INCREASED [None]
  - MELAENA [None]
  - HAEMOGLOBIN DECREASED [None]
  - DUODENAL ULCER [None]
